FAERS Safety Report 5994901-0 (Version None)
Quarter: 2008Q4

REPORT INFORMATION
  Report Type: 
  Country: None (occurrence: None)
  Receive Date: 20081212
  Receipt Date: 20081209
  Transmission Date: 20090506
  Serious: Yes (Death)
  Sender: FDA-Public Use
  Company Number: JP-JNJFOC-20080404475

PATIENT
  Sex: Female
  Weight: 85 kg

DRUGS (6)
  1. RISPERDAL [Suspect]
     Indication: SCHIZOPHRENIA, UNDIFFERENTIATED TYPE
     Route: 048
  2. INDERAL [Concomitant]
     Dates: start: 20071228
  3. VASOLAN [Concomitant]
     Dates: start: 20071228
  4. AMLODIN [Concomitant]
     Dates: start: 20071228
  5. THYRADIN [Concomitant]
     Dates: start: 20071228
  6. SILECE [Concomitant]
     Dates: start: 20071228

REACTIONS (4)
  - ANAEMIA [None]
  - HEPATIC FAILURE [None]
  - HEPATIC STEATOSIS [None]
  - PLATELET COUNT DECREASED [None]
